FAERS Safety Report 24555825 (Version 4)
Quarter: 2025Q2

REPORT INFORMATION
  Report Type: Spontaneous
  Country: US (occurrence: US)
  Receive Date: 20241028
  Receipt Date: 20250515
  Transmission Date: 20250717
  Serious: Yes (Hospitalization)
  Sender: PFIZER
  Company Number: US-PFIZER INC-202400286812

PATIENT
  Age: 71 Year
  Sex: Male
  Weight: 108.84 kg

DRUGS (1)
  1. XELJANZ [Suspect]
     Active Substance: TOFACITINIB CITRATE
     Indication: Colitis
     Dosage: 10 MG, DAILY (EVERY MORNING)
     Dates: start: 2024

REACTIONS (3)
  - Eating disorder [Unknown]
  - Loss of personal independence in daily activities [Unknown]
  - Illness [Unknown]
